FAERS Safety Report 10661140 (Version 2)
Quarter: 2015Q1

REPORT INFORMATION
  Report Type: Report from Study
  Country: US (occurrence: US)
  Receive Date: 20141218
  Receipt Date: 20150115
  Transmission Date: 20150720
  Serious: Yes (Hospitalization)
  Sender: FDA-Public Use
  Company Number: US-BIOGENIDEC-2014BI131478

PATIENT
  Sex: Female

DRUGS (1)
  1. TYSABRI [Suspect]
     Active Substance: NATALIZUMAB
     Indication: MULTIPLE SCLEROSIS
     Route: 042
     Dates: start: 20140401, end: 20141105

REACTIONS (4)
  - Emotional disorder [Unknown]
  - Bipolar disorder [Not Recovered/Not Resolved]
  - Cognitive disorder [Unknown]
  - Mental disorder [Unknown]
